FAERS Safety Report 22620380 (Version 3)
Quarter: 2023Q2

REPORT INFORMATION
  Report Type: Report from Study
  Country: RO (occurrence: RO)
  Receive Date: 20230620
  Receipt Date: 20230630
  Transmission Date: 20230721
  Serious: Yes (Life-Threatening, Hospitalization, Other)
  Sender: FDA-Public Use
  Company Number: RO-002147023-NVSC2023RO132567

PATIENT

DRUGS (7)
  1. RUXOLITINIB [Suspect]
     Active Substance: RUXOLITINIB
     Indication: Essential thrombocythaemia
     Dosage: 20 MG, BID (PILL) (2X/ DAY)
     Route: 048
     Dates: start: 2012, end: 202109
  2. RUXOLITINIB [Suspect]
     Active Substance: RUXOLITINIB
     Indication: Myelofibrosis
     Dosage: 20 MG, BID (2X/ DAY)
     Route: 048
     Dates: start: 202110, end: 202202
  3. RUXOLITINIB [Suspect]
     Active Substance: RUXOLITINIB
     Dosage: 20 MG, BID (2X/ DAY)
     Route: 048
     Dates: start: 202202, end: 20230516
  4. DIUREX [PAMABROM] [Concomitant]
     Indication: Product used for unknown indication
     Dosage: (50/ 20MG), QD (1X/ DAY)
     Route: 065
     Dates: start: 2022
  5. BISOPROLOL FUMARATE [Concomitant]
     Active Substance: BISOPROLOL FUMARATE
     Indication: Product used for unknown indication
     Dosage: 10 MG (5 MG MORNING , 5 MG EVENING)
     Route: 065
     Dates: start: 2022
  6. RAMIPRIL [Concomitant]
     Active Substance: RAMIPRIL
     Indication: Product used for unknown indication
     Dosage: 0,5 MG, (HALF MORNING , HALF EVENING)
     Route: 065
     Dates: start: 2022
  7. ATORVASTATIN [Concomitant]
     Active Substance: ATORVASTATIN
     Indication: Product used for unknown indication
     Dosage: 40 MG, QD (1X/ DAY)
     Route: 065
     Dates: start: 2022

REACTIONS (17)
  - Hypersensitivity [Recovered/Resolved]
  - Illness [Not Recovered/Not Resolved]
  - Malaise [Unknown]
  - Product availability issue [Unknown]
  - Cardiac failure [Not Recovered/Not Resolved]
  - COVID-19 [Recovered/Resolved]
  - Product use in unapproved indication [Unknown]
  - Peripheral swelling [Recovered/Resolved]
  - Haemoglobin decreased [Recovering/Resolving]
  - Aphasia [Recovered/Resolved]
  - Cerebrovascular accident [Recovered/Resolved]
  - Peripheral swelling [Recovered/Resolved]
  - Swelling face [Recovered/Resolved]
  - Lip swelling [Recovered/Resolved]
  - Product dose omission issue [Not Recovered/Not Resolved]
  - Myocardial infarction [Recovered/Resolved]
  - Vertigo [Not Recovered/Not Resolved]

NARRATIVE: CASE EVENT DATE: 20190101
